FAERS Safety Report 12908564 (Version 3)
Quarter: 2017Q2

REPORT INFORMATION
  Report Type: Spontaneous
  Country: US (occurrence: US)
  Receive Date: 20161103
  Receipt Date: 20170502
  Transmission Date: 20170830
  Serious: No
  Sender: FDA-Public Use
  Company Number: US-IMPAX LABORATORIES, INC-2016-IPXL-00816

PATIENT
  Age: 95 Year
  Sex: Male
  Weight: 58 kg

DRUGS (1)
  1. RYTARY [Suspect]
     Active Substance: CARBIDOPA\LEVODOPA
     Indication: PARKINSON^S DISEASE
     Dosage: 23.75/95MG, FOUR CAPSULES THREE TIMES A DAY WITH MEAL
     Route: 048
     Dates: start: 20160709, end: 20160718

REACTIONS (11)
  - Anxiety [Recovering/Resolving]
  - Somnolence [Recovering/Resolving]
  - Parkinson^s disease [Recovering/Resolving]
  - Movement disorder [Not Recovered/Not Resolved]
  - Freezing phenomenon [Unknown]
  - Dizziness [Recovering/Resolving]
  - Abdominal discomfort [Recovering/Resolving]
  - Balance disorder [Unknown]
  - Fall [Recovering/Resolving]
  - Depressed mood [Recovering/Resolving]
  - Drug ineffective [Unknown]

NARRATIVE: CASE EVENT DATE: 201607
